FAERS Safety Report 24602332 (Version 1)
Quarter: 2024Q4

REPORT INFORMATION
  Report Type: Report from Study
  Country: US (occurrence: US)
  Receive Date: 20241111
  Receipt Date: 20241111
  Transmission Date: 20250115
  Serious: Yes (Other)
  Sender: ROCHE
  Company Number: US-ROCHE-10000124400

PATIENT
  Age: 55 Year
  Sex: Female

DRUGS (1)
  1. ACTEMRA [Suspect]
     Active Substance: TOCILIZUMAB
     Indication: Rheumatoid arthritis
     Route: 058

REACTIONS (6)
  - Rheumatoid arthritis [Unknown]
  - Head injury [Unknown]
  - Head injury [Unknown]
  - Cerebral haemorrhage [Unknown]
  - Sinusitis [Unknown]
  - Memory impairment [Unknown]
